FAERS Safety Report 5127209-6 (Version None)
Quarter: 2006Q4

REPORT INFORMATION
  Report Type: 
  Country: None (occurrence: None)
  Receive Date: 20061009
  Receipt Date: 20061002
  Transmission Date: 20070319
  Serious: Yes (Death, Other)
  Sender: FDA-Public Use
  Company Number: HQWYE512221JAN04

PATIENT
  Age: 53 Year
  Sex: Female

DRUGS (3)
  1. PREMPRO [Suspect]
     Indication: HORMONE REPLACEMENT THERAPY
     Dosage: ORAL
     Route: 048
     Dates: start: 19980716, end: 20000201
  2. PREMARIN [Suspect]
     Indication: OESTROGEN REPLACEMENT THERAPY
     Dosage: ORAL
     Route: 048
     Dates: start: 19941102, end: 19980401
  3. PROVERA [Suspect]
     Indication: HORMONE REPLACEMENT THERAPY
     Dosage: ORAL
     Route: 048
     Dates: start: 19941102, end: 19980401

REACTIONS (9)
  - ACUTE MYELOID LEUKAEMIA [None]
  - ASCITES [None]
  - CHOLELITHIASIS [None]
  - CONVULSION [None]
  - DIVERTICULITIS [None]
  - OVARIAN CANCER METASTATIC [None]
  - PELVIC INFLAMMATORY DISEASE [None]
  - PELVIC MASS [None]
  - TREATMENT RELATED SECONDARY MALIGNANCY [None]
